FAERS Safety Report 4330114-6 (Version None)
Quarter: 2004Q1

REPORT INFORMATION
  Report Type: 
  Country: None (occurrence: None)
  Receive Date: 20040329
  Receipt Date: 20031210
  Transmission Date: 20041129
  Serious: No
  Sender: FDA-Public Use
  Company Number: 03P-163-0244489-00

PATIENT
  Age: 67 Year
  Sex: Female
  Weight: 62.5964 kg

DRUGS (5)
  1. HUMIRA [Suspect]
     Indication: RHEUMATOID ARTHRITIS
     Dosage: 40 MG, 1 IN 32 WK, SUBCUTANEOUS
     Route: 058
     Dates: start: 20030801
  2. RISEDRONAGE SODIUM [Concomitant]
  3. ESTRADIOL [Concomitant]
  4. ATENOLOL [Concomitant]
  5. NAPROXEN [Concomitant]

REACTIONS (1)
  - INJECTION SITE HAEMORRHAGE [None]
